FAERS Safety Report 5644235-9 (Version None)
Quarter: 2008Q1

REPORT INFORMATION
  Report Type: 
  Country: None (occurrence: None)
  Receive Date: 20080229
  Receipt Date: 20080225
  Transmission Date: 20080703
  Serious: Yes (Hospitalization, Other)
  Sender: FDA-Public Use
  Company Number: FR-WYE-G01128508

PATIENT
  Sex: Female

DRUGS (8)
  1. TAZOCILLINE [Suspect]
     Indication: BACTERIAL PYELONEPHRITIS
     Dosage: UNKNOWN
     Route: 042
     Dates: start: 20071209, end: 20071211
  2. GENTAMICIN [Concomitant]
     Indication: BACTERIAL PYELONEPHRITIS
     Dosage: UNKNOWN
     Dates: start: 20071209, end: 20071201
  3. HEPARIN SODIUM [Concomitant]
     Indication: VENA CAVA THROMBOSIS
     Dosage: UNKNOWN
  4. CALCIUM CHANNEL BLOCKERS [Concomitant]
     Indication: ESSENTIAL HYPERTENSION
     Dosage: UNKNOWN
  5. GLUCOR [Concomitant]
     Indication: TYPE 2 DIABETES MELLITUS
     Dosage: UNKNOWN
     Route: 048
  6. AVANDIA [Concomitant]
     Indication: TYPE 2 DIABETES MELLITUS
     Dosage: UNKNOWN
     Route: 048
  7. PIPERACILLIN [Suspect]
     Indication: BACTERIAL PYELONEPHRITIS
     Dosage: UNKNOWN
     Route: 042
     Dates: start: 20071212, end: 20071213
  8. ACE INHIBITOR NOS [Concomitant]
     Indication: ESSENTIAL HYPERTENSION
     Dosage: UNKNOWN

REACTIONS (4)
  - AUTOIMMUNE THROMBOCYTOPENIA [None]
  - GINGIVAL BLEEDING [None]
  - RECTAL HAEMORRHAGE [None]
  - VESSEL PUNCTURE SITE HAEMORRHAGE [None]
